FAERS Safety Report 6572283-3 (Version None)
Quarter: 2010Q1

REPORT INFORMATION
  Report Type: 
  Country: None (occurrence: None)
  Receive Date: 20100205
  Receipt Date: 20100203
  Transmission Date: 20100710
  Serious: Yes (Death)
  Sender: FDA-Public Use
  Company Number: PHEH2010US01907

PATIENT
  Sex: Male
  Weight: 56.236 kg

DRUGS (1)
  1. EXJADE [Suspect]
     Dosage: 250MG DAILY PO
     Route: 048
     Dates: start: 20091127

REACTIONS (2)
  - COMPLICATIONS OF BONE MARROW TRANSPLANT [None]
  - STEM CELL TRANSPLANT [None]
